FAERS Safety Report 14495877 (Version 2)
Quarter: 2018Q1

REPORT INFORMATION
  Report Type: Spontaneous
  Country: US (occurrence: US)
  Receive Date: 20180207
  Receipt Date: 20180302
  Transmission Date: 20180509
  Serious: Yes (Hospitalization)
  Sender: FDA-Public Use
  Company Number: US-TEVA-2018-US-856361

PATIENT
  Sex: Female

DRUGS (1)
  1. SORIATANE [Suspect]
     Active Substance: ACITRETIN
     Indication: PUSTULAR PSORIASIS
     Route: 065
     Dates: start: 2004

REACTIONS (3)
  - Pain [Unknown]
  - Condition aggravated [Unknown]
  - Blister [Unknown]

NARRATIVE: CASE EVENT DATE: 2015
